FAERS Safety Report 9053972 (Version 3)
Quarter: 2013Q1

REPORT INFORMATION
  Report Type: Spontaneous
  Country: FR (occurrence: FR)
  Receive Date: 20130208
  Receipt Date: 20130322
  Transmission Date: 20140127
  Serious: Yes (Other)
  Sender: FDA-Public Use
  Company Number: FR-NOVOPROD-370109

PATIENT
  Age: 18 Year
  Sex: Female
  Weight: 92 kg

DRUGS (1)
  1. LEVEMIR [Suspect]
     Indication: GESTATIONAL DIABETES
     Dosage: 4 IU, QD
     Route: 058
     Dates: start: 20121023

REACTIONS (2)
  - Foetal death [Unknown]
  - Exposure during pregnancy [Unknown]
